FAERS Safety Report 9922459 (Version 2)
Quarter: 2014Q1

REPORT INFORMATION
  Report Type: Report from Study
  Country: DE (occurrence: DE)
  Receive Date: 20140225
  Receipt Date: 20140225
  Transmission Date: 20141002
  Serious: Yes (Other)
  Sender: FDA-Public Use
  Company Number: DE-ABBVIE-13P-062-1178649-00

PATIENT
  Age: 77 Year
  Sex: Male
  Weight: 74 kg

DRUGS (2)
  1. LEUPRORELIN [Suspect]
     Indication: PROSTATE CANCER
     Route: 058
     Dates: start: 20130212
  2. ANTIANDROGENS [Concomitant]
     Indication: PRODUCT USED FOR UNKNOWN INDICATION
     Dates: start: 20130516

REACTIONS (2)
  - Blood alkaline phosphatase increased [Not Recovered/Not Resolved]
  - Prostate cancer [Unknown]
